FAERS Safety Report 17538089 (Version 1)
Quarter: 2020Q1

REPORT INFORMATION
  Report Type: Spontaneous
  Country: US (occurrence: US)
  Receive Date: 20200305
  Receipt Date: 20200305
  Transmission Date: 20200409
  Serious: No
  Sender: FDA-Public Use
  Company Number: None

PATIENT
  Age: 57 Year
  Sex: Female

DRUGS (1)
  1. SUTENT [Suspect]
     Active Substance: SUNITINIB MALATE
     Indication: RENAL CANCER
     Route: 048
     Dates: start: 20171027

REACTIONS (4)
  - Endodontic procedure [None]
  - Parosmia [None]
  - Rhinorrhoea [None]
  - Infection [None]

NARRATIVE: CASE EVENT DATE: 20200228
